FAERS Safety Report 15133450 (Version 8)
Quarter: 2019Q4

REPORT INFORMATION
  Report Type: Spontaneous
  Country: US (occurrence: US)
  Receive Date: 20180712
  Receipt Date: 20191106
  Transmission Date: 20200122
  Serious: Yes (Hospitalization, Other)
  Sender: FDA-Public Use
  Company Number: US-PFIZER INC-2018277831

PATIENT
  Age: 72 Year
  Sex: Female
  Weight: 54.43 kg

DRUGS (5)
  1. AMLODIPINE BESYLATE. [Concomitant]
     Active Substance: AMLODIPINE BESYLATE
     Indication: HYPERTENSION
     Dosage: 5 MG, 2X/DAY
     Route: 048
     Dates: start: 201807
  2. EXEMESTANE. [Concomitant]
     Active Substance: EXEMESTANE
     Dosage: UNK
     Dates: start: 20180309
  3. IBRANCE [Suspect]
     Active Substance: PALBOCICLIB
     Indication: BREAST CANCER METASTATIC
     Dosage: 125 MG, CYCLIC (ONE CAPSULE BY MOUTH DAILY FOR 21 DAYS AND THEN OFF FOR 7 DAYS)
     Route: 048
     Dates: start: 20180604, end: 20180626
  4. IBRANCE [Suspect]
     Active Substance: PALBOCICLIB
     Dosage: 100 MG, CYCLIC
  5. HYDRALAZINE [Concomitant]
     Active Substance: HYDRALAZINE HYDROCHLORIDE
     Indication: HYPERTENSION
     Dosage: 25 MG, 2X/DAY
     Route: 048
     Dates: start: 201807

REACTIONS (22)
  - Neutropenia [Recovered/Resolved]
  - Dizziness [Unknown]
  - Vomiting [Unknown]
  - Chest discomfort [Recovered/Resolved]
  - Malaise [Unknown]
  - Pleural effusion [Recovered/Resolved]
  - Blood pressure increased [Recovering/Resolving]
  - Neoplasm progression [Unknown]
  - Dysgeusia [Recovering/Resolving]
  - Dysphagia [Not Recovered/Not Resolved]
  - Weight decreased [Recovering/Resolving]
  - Depressed mood [Unknown]
  - Hyperhidrosis [Recovering/Resolving]
  - Dyspnoea [Recovered/Resolved]
  - Full blood count decreased [Recovered/Resolved]
  - Nasal congestion [Recovering/Resolving]
  - Tremor [Unknown]
  - Nausea [Recovering/Resolving]
  - Fatigue [Recovering/Resolving]
  - Muscle spasms [Recovering/Resolving]
  - Product size issue [Not Recovered/Not Resolved]
  - Chills [Recovered/Resolved]

NARRATIVE: CASE EVENT DATE: 201806
